FAERS Safety Report 5202259-X (Version None)
Quarter: 2007Q1

REPORT INFORMATION
  Report Type: 
  Country: None (occurrence: None)
  Receive Date: 20070109
  Receipt Date: 20070105
  Transmission Date: 20070707
  Serious: Yes (Other)
  Sender: FDA-Public Use
  Company Number: US-GLAXOSMITHKLINE-A0634523A

PATIENT
  Age: 80 Year
  Sex: Female

DRUGS (14)
  1. COREG [Suspect]
     Dosage: 6.25MG TWICE PER DAY
     Route: 048
     Dates: start: 20070104
  2. NORVASC [Concomitant]
  3. LEVOXYL [Concomitant]
  4. DIOVAN [Concomitant]
  5. ENABLEX [Concomitant]
  6. K-DUR 10 [Concomitant]
  7. AMOXICILLIN [Concomitant]
  8. STRESS B COMPLEX [Concomitant]
  9. ASPIRIN [Concomitant]
  10. MULTI-VITAMIN [Concomitant]
  11. FISH OIL [Concomitant]
  12. ASCORBIC ACID [Concomitant]
  13. VITAMIN E [Concomitant]
  14. FLAX SEED OIL [Concomitant]

REACTIONS (2)
  - INCONTINENCE [None]
  - MICTURITION URGENCY [None]
